FAERS Safety Report 10452754 (Version 2)
Quarter: 2014Q3

REPORT INFORMATION
  Report Type: Spontaneous
  Country: US (occurrence: None)
  Receive Date: 20140911
  Receipt Date: 20140930
  Transmission Date: 20150326
  Serious: Yes (Other)
  Sender: FDA-Public Use
  Company Number: 1713747-2014-999134

PATIENT
  Age: 79 Year
  Sex: Female
  Weight: 48 kg

DRUGS (3)
  1. GRANUFLO [Concomitant]
     Active Substance: ACETIC ACID\SODIUM ACETATE
  2. 0.9% SODIUM CHLORIDE INJECTION [Suspect]
     Active Substance: SODIUM CHLORIDE
     Indication: RENAL FAILURE CHRONIC
     Dosage: HEMODIALYSIS
     Dates: start: 20140821
  3. NATURALYTE [Concomitant]
     Active Substance: ACETIC ACID\SODIUM ACETATE

REACTIONS (3)
  - Dialysis related complication [None]
  - Unresponsive to stimuli [None]
  - Moaning [None]

NARRATIVE: CASE EVENT DATE: 20140821
